FAERS Safety Report 5836063-6 (Version None)
Quarter: 2008Q3

REPORT INFORMATION
  Report Type: 
  Country: None (occurrence: None)
  Receive Date: 20080806
  Receipt Date: 20080729
  Transmission Date: 20090109
  Serious: Yes (Other)
  Sender: FDA-Public Use
  Company Number: US-PFIZER INC-2008063481

PATIENT
  Sex: Female
  Weight: 84.09 kg

DRUGS (3)
  1. XALATAN [Suspect]
     Indication: GLAUCOMA
     Route: 047
  2. XALATAN [Suspect]
     Indication: OCULAR HYPERAEMIA
  3. INSULIN [Concomitant]
     Indication: DIABETES MELLITUS

REACTIONS (4)
  - CATARACT [None]
  - DRY EYE [None]
  - EYE IRRITATION [None]
  - HEADACHE [None]
